FAERS Safety Report 23621325 (Version 1)
Quarter: 2024Q1

REPORT INFORMATION
  Report Type: Spontaneous
  Country: US (occurrence: None)
  Receive Date: 20240311
  Receipt Date: 20240311
  Transmission Date: 20240410
  Serious: Yes (Death, Hospitalization)
  Sender: FDA-Public Use
  Company Number: None

PATIENT
  Age: 78 Year
  Sex: Female

DRUGS (13)
  1. AMBRISENTAN [Suspect]
     Active Substance: AMBRISENTAN
     Indication: Pulmonary arterial hypertension
     Dosage: FREQUENCY : DAILY;?
     Route: 048
     Dates: start: 20230602, end: 20240206
  2. sildemafil [Concomitant]
  3. SPIRONOLACTONE [Concomitant]
     Active Substance: SPIRONOLACTONE
  4. SODIUM BICARBONATE [Concomitant]
     Active Substance: SODIUM BICARBONATE
  5. PRADAXA [Concomitant]
     Active Substance: DABIGATRAN ETEXILATE MESYLATE
  6. ALLOPURINOL [Concomitant]
     Active Substance: ALLOPURINOL
  7. DILTIAZEM [Concomitant]
     Active Substance: DILTIAZEM
  8. ATORVASTATIN [Concomitant]
     Active Substance: ATORVASTATIN
  9. FUROSEMIDE [Concomitant]
     Active Substance: FUROSEMIDE
  10. POTASSIUM CHLORIDE [Concomitant]
     Active Substance: POTASSIUM CHLORIDE
  11. DILTIAZEM [Concomitant]
  12. FERROUS SULFATE [Concomitant]
     Active Substance: FERROUS SULFATE
  13. VITAMINS [Concomitant]
     Active Substance: VITAMINS

REACTIONS (7)
  - Cardiac failure congestive [None]
  - Hypervolaemia [None]
  - Mental status changes [None]
  - Pneumonia [None]
  - Pulseless electrical activity [None]
  - Therapy cessation [None]
  - Hypoxia [None]

NARRATIVE: CASE EVENT DATE: 20240204
